FAERS Safety Report 5122436-6 (Version None)
Quarter: 2006Q4

REPORT INFORMATION
  Report Type: 
  Country: None (occurrence: None)
  Receive Date: 20061004
  Receipt Date: 20060925
  Transmission Date: 20070319
  Serious: Yes (Hospitalization)
  Sender: FDA-Public Use
  Company Number: 2006BI013017

PATIENT
  Age: 28 Year
  Sex: Female
  Weight: 54.4316 kg

DRUGS (3)
  1. AVONEX [Suspect]
     Indication: MULTIPLE SCLEROSIS
     Dosage: 30 UG; QW; IM
     Route: 030
     Dates: start: 19971101, end: 19981101
  2. TEGRETOL [Concomitant]
  3. NEURONTIN [Concomitant]

REACTIONS (5)
  - CONVERSION DISORDER [None]
  - GASTRIC DISORDER [None]
  - NAUSEA [None]
  - OESOPHAGEAL RUPTURE [None]
  - VOMITING [None]
